FAERS Safety Report 8847426 (Version 1)
Quarter: 2012Q4

REPORT INFORMATION
  Report Type: 
  Country: US (occurrence: US)
  Receive Date: 20121018
  Receipt Date: 20121018
  Transmission Date: 20130627
  Serious: No
  Sender: FDA-Public Use
  Company Number: US-B.I. PHARMACEUTICALS,INC./RIDGEFIELD-2012-BP-24216BP

PATIENT
  Sex: Female

DRUGS (4)
  1. MIRAPEX [Suspect]
     Indication: RESTLESS LEGS SYNDROME
     Route: 048
     Dates: start: 2007, end: 2008
  2. MIRAPEX [Suspect]
     Dosage: 0.5 mg
     Route: 048
     Dates: start: 2008
  3. DILANTIN [Concomitant]
     Indication: CONVULSION
     Route: 048
  4. MYSOLINE [Concomitant]
     Indication: CONVULSION
     Route: 048

REACTIONS (1)
  - Somnolence [Recovered/Resolved]
